FAERS Safety Report 7819176-9 (Version None)
Quarter: 2011Q4

REPORT INFORMATION
  Report Type: 
  Country: None (occurrence: None)
  Receive Date: 20111012
  Receipt Date: 20110930
  Transmission Date: 20120403
  Serious: Yes (Other)
  Sender: FDA-Public Use
  Company Number: AUR-APL-2009-01657

PATIENT
  Age: 12 Year
  Sex: Male

DRUGS (12)
  1. RISPERIDONE [Suspect]
     Indication: OBSESSIVE-COMPULSIVE DISORDER
     Dosage: (3 MG, 1 D), (5 MG, 1 D),  (2 MG, 1 D),
  2. RISPERIDONE [Suspect]
     Indication: ANXIETY
     Dosage: (3 MG, 1 D), (5 MG, 1 D),  (2 MG, 1 D),
  3. RISPERIDONE [Suspect]
     Indication: ATTENTION DEFICIT/HYPERACTIVITY DISORDER
     Dosage: (3 MG, 1 D), (5 MG, 1 D),  (2 MG, 1 D),
  4. SERTRALINE HYDROCHLORIDE [Suspect]
     Indication: ANXIETY
     Dosage: (50 TO 100 MG/DAY), (100 MG)
  5. SERTRALINE HYDROCHLORIDE [Suspect]
     Indication: OBSESSIVE-COMPULSIVE DISORDER
     Dosage: (50 TO 100 MG/DAY), (100 MG)
  6. SERTRALINE HYDROCHLORIDE [Suspect]
     Indication: ATTENTION DEFICIT/HYPERACTIVITY DISORDER
     Dosage: (50 TO 100 MG/DAY), (100 MG)
  7. FLUVOXAMINE MALEATE [Suspect]
     Indication: ATTENTION DEFICIT/HYPERACTIVITY DISORDER
     Dosage: (150 MG, 1 D),
  8. FLUVOXAMINE MALEATE [Suspect]
     Indication: OBSESSIVE-COMPULSIVE DISORDER
     Dosage: (150 MG, 1 D),
  9. FLUVOXAMINE MALEATE [Suspect]
     Indication: ANXIETY
     Dosage: (150 MG, 1 D),
  10. CLOMIPRAMINE HCL [Suspect]
     Indication: OBSESSIVE-COMPULSIVE DISORDER
     Dosage: (75 MG, 1 D), (UP TO 200 MG/DAY), (150 MG, 1 D),
  11. CLOMIPRAMINE HCL [Suspect]
     Indication: ATTENTION DEFICIT/HYPERACTIVITY DISORDER
     Dosage: (75 MG, 1 D), (UP TO 200 MG/DAY), (150 MG, 1 D),
  12. CLOMIPRAMINE HCL [Suspect]
     Indication: ANXIETY
     Dosage: (75 MG, 1 D), (UP TO 200 MG/DAY), (150 MG, 1 D),

REACTIONS (17)
  - PSYCHOTIC DISORDER [None]
  - ATTENTION DEFICIT/HYPERACTIVITY DISORDER [None]
  - FATIGUE [None]
  - DRY MOUTH [None]
  - HALLUCINATIONS, MIXED [None]
  - OBSESSIVE-COMPULSIVE DISORDER [None]
  - SCHIZOPHRENIA [None]
  - SUICIDAL IDEATION [None]
  - DIZZINESS [None]
  - PAIN IN EXTREMITY [None]
  - CONDITION AGGRAVATED [None]
  - ANXIETY [None]
  - WEIGHT DECREASED [None]
  - SEDATION [None]
  - HOMICIDAL IDEATION [None]
  - PARANOIA [None]
  - DRUG EFFECT DECREASED [None]
